FAERS Safety Report 14368426 (Version 1)
Quarter: 2018Q1

REPORT INFORMATION
  Report Type: Spontaneous
  Country: US (occurrence: US)
  Receive Date: 20180109
  Receipt Date: 20180109
  Transmission Date: 20180509
  Serious: Yes (Hospitalization)
  Sender: FDA-Public Use
  Company Number: US-PCCINC-T201602664

PATIENT

DRUGS (3)
  1. GABLOFEN [Suspect]
     Active Substance: BACLOFEN
     Dosage: 99 ?G, QD
     Route: 037
     Dates: start: 20160930
  2. GABLOFEN [Suspect]
     Active Substance: BACLOFEN
     Indication: CEREBRAL PALSY
     Dosage: 180.6 ?G, QD
     Route: 037
  3. GABLOFEN [Suspect]
     Active Substance: BACLOFEN
     Indication: MUSCLE SPASTICITY
     Dosage: 198 ?G, QD
     Route: 037
     Dates: end: 20160930

REACTIONS (5)
  - Device issue [Unknown]
  - Hypoxic-ischaemic encephalopathy [Unknown]
  - Discomfort [Unknown]
  - Withdrawal syndrome [Unknown]
  - Hypertonia [Unknown]

NARRATIVE: CASE EVENT DATE: 201605
